FAERS Safety Report 18339933 (Version 1)
Quarter: 2020Q4

REPORT INFORMATION
  Report Type: Spontaneous
  Country: DE (occurrence: DE)
  Receive Date: 20201002
  Receipt Date: 20201002
  Transmission Date: 20210113
  Serious: Yes (Hospitalization)
  Sender: FDA-Public Use
  Company Number: DE-TEVA-2020-DE-1833266

PATIENT
  Age: 37 Year
  Sex: Female
  Weight: 90 kg

DRUGS (16)
  1. ROSUVASTATIN. [Concomitant]
     Active Substance: ROSUVASTATIN
     Dosage: 40 MILLIGRAM DAILY; 0-0-1-0
     Route: 048
  2. PIPAMPERON [Concomitant]
     Active Substance: PIPAMPERONE HYDROCHLORIDE
     Dosage: 40 MILLIGRAM DAILY; 0-0-0-1
     Route: 048
  3. VENLAFAXIN [Concomitant]
     Active Substance: VENLAFAXINE HYDROCHLORIDE
     Dosage: 150 MILLIGRAM DAILY; 1-0-0-0
     Route: 048
  4. CLONIDINE. [Suspect]
     Active Substance: CLONIDINE
     Dosage: 4 DOSAGE FORMS DAILY; 0.075 MG, 2-0-2-0
     Route: 048
  5. HYDROMORPHON [Concomitant]
     Active Substance: HYDROMORPHONE
     Dosage: 16 MILLIGRAM DAILY; 1-1-1-1
     Route: 048
  6. TORASEMIDE [Suspect]
     Active Substance: TORSEMIDE
     Dosage: 10 MG, 2-1-0-0
     Route: 048
  7. SUMATRIPTAN. [Concomitant]
     Active Substance: SUMATRIPTAN
     Dosage: 2 DOSAGE FORMS DAILY; 50 MG, 2-0-0-0
     Route: 048
  8. NATRIUMCHLORID [Concomitant]
     Active Substance: SODIUM CHLORIDE
     Dosage: 6 DOSAGE FORMS DAILY; 1 G, 2-2-2-0
     Route: 048
  9. AMPHO-MORONAL [Concomitant]
     Active Substance: AMPHOTERICIN B
     Dosage: 4 DOSAGE FORMS DAILY; NK MG, 1-1-1-1
     Route: 048
  10. LOPERAMID [Concomitant]
     Active Substance: LOPERAMIDE
     Dosage: 6 MILLIGRAM DAILY; 1-1-1-0
     Route: 048
  11. METAMIZOL [Concomitant]
     Active Substance: METAMIZOLE SODIUM
     Dosage: 500 MG, 4X
     Route: 048
  12. ZOPICLON [Concomitant]
     Active Substance: ZOPICLONE
     Dosage: 7.5 MILLIGRAM DAILY; 7.5 MG, 0-0-0-1
     Route: 048
  13. INSULIN DETEMIR [Concomitant]
     Active Substance: INSULIN DETEMIR
     Dosage: 48 IU (INTERNATIONAL UNIT) DAILY; 1-0-0-1, AMPOULES
     Route: 058
  14. INSULIN HUMAN [Concomitant]
     Active Substance: INSULIN HUMAN
     Dosage: 42 IU (INTERNATIONAL UNIT) DAILY; 1-1-1-0, AMPOULES
     Route: 058
  15. VENLAFAXIN [Concomitant]
     Active Substance: VENLAFAXINE HYDROCHLORIDE
     Dosage: 2 DOSAGE FORMS DAILY; 37.5 MG, 2-0-0-0
     Route: 048
  16. MCP AL 10 [Concomitant]
     Dosage: 10 MG, 3X
     Route: 048

REACTIONS (3)
  - Hypertension [Unknown]
  - Suicidal ideation [Unknown]
  - Musculoskeletal pain [Unknown]
